FAERS Safety Report 17804829 (Version 7)
Quarter: 2020Q3

REPORT INFORMATION
  Report Type: Spontaneous
  Country: US (occurrence: US)
  Receive Date: 20200520
  Receipt Date: 20200922
  Transmission Date: 20201102
  Serious: Yes (Other)
  Sender: FDA-Public Use
  Company Number: US-AUROBINDO-AUR-APL-2020-025056

PATIENT
  Sex: Male
  Weight: 87.08 kg

DRUGS (2)
  1. METFORMIN [Concomitant]
     Active Substance: METFORMIN HYDROCHLORIDE
     Indication: TYPE 2 DIABETES MELLITUS
     Dosage: 2 DOSAGE FORM, AT DINNER
     Route: 065
  2. FINASTERIDE TABLETS USP 5MG [Suspect]
     Active Substance: FINASTERIDE
     Indication: PRODUCT USED FOR UNKNOWN INDICATION
     Dosage: 1 DOSAGE FORM, ONCE A DAY (ONE TABLET PER DAY FOR 02 YEARS)
     Route: 048
     Dates: end: 202004

REACTIONS (6)
  - Breast tenderness [Recovering/Resolving]
  - Discomfort [Recovering/Resolving]
  - Breast swelling [Recovering/Resolving]
  - Nipple pain [Recovering/Resolving]
  - Breast enlargement [Recovering/Resolving]
  - Breast pain [Recovering/Resolving]

NARRATIVE: CASE EVENT DATE: 202001
